FAERS Safety Report 7556749-5 (Version None)
Quarter: 2011Q2

REPORT INFORMATION
  Report Type: 
  Country: None (occurrence: None)
  Receive Date: 20110620
  Receipt Date: 20110607
  Transmission Date: 20111010
  Serious: Yes (Death)
  Sender: FDA-Public Use
  Company Number: US-ELI_LILLY_AND_COMPANY-US201106002258

PATIENT
  Age: 59 Year
  Sex: Male

DRUGS (4)
  1. ZYPREXA [Suspect]
     Dosage: 60 MG, QD
  2. ZYPREXA [Suspect]
     Indication: SCHIZOPHRENIA
     Dosage: 40 MG, QD
  3. CYMBALTA [Concomitant]
     Dosage: 60 MG, BID
  4. VALIUM [Concomitant]
     Dosage: UNK, TID

REACTIONS (3)
  - OVERDOSE [None]
  - INSOMNIA [None]
  - MYOCARDIAL INFARCTION [None]
